FAERS Safety Report 9799573 (Version 3)
Quarter: 2015Q3

REPORT INFORMATION
  Report Type: Spontaneous
  Country: US (occurrence: US)
  Receive Date: 20140106
  Receipt Date: 20150806
  Transmission Date: 20151125
  Serious: No
  Sender: FDA-Public Use
  Company Number: US-GILEAD-2010-0030271

PATIENT
  Age: 85 Year
  Sex: Female

DRUGS (17)
  1. OXYGEN. [Concomitant]
     Active Substance: OXYGEN
  2. LASIX [Concomitant]
     Active Substance: FUROSEMIDE
  3. LIPITOR [Concomitant]
     Active Substance: ATORVASTATIN CALCIUM
  4. LETAIRIS [Suspect]
     Active Substance: AMBRISENTAN
     Indication: PULMONARY ARTERIAL HYPERTENSION
     Route: 048
     Dates: start: 20100609, end: 20100706
  5. PLAVIX [Concomitant]
     Active Substance: CLOPIDOGREL BISULFATE
  6. VITAMIN D [Concomitant]
     Active Substance: CHOLECALCIFEROL
  7. DIOVAN [Concomitant]
     Active Substance: VALSARTAN
  8. PARACETAMOL/HYDROCODONE BITARTRATE [Concomitant]
  9. MULTIVITAMIN [Concomitant]
     Active Substance: VITAMINS
  10. CALCIUM D-GLUCARATE [Concomitant]
  11. ASPIRIN. [Concomitant]
     Active Substance: ASPIRIN
  12. CYMBALTA [Concomitant]
     Active Substance: DULOXETINE HYDROCHLORIDE
  13. SERAX [Concomitant]
     Active Substance: OXAZEPAM
  14. TYLENOL WITH CODEINE [Concomitant]
     Active Substance: ACETAMINOPHEN\CODEINE PHOSPHATE
  15. COQ10 [Concomitant]
     Active Substance: UBIDECARENONE
  16. VITAMIN E [Concomitant]
     Active Substance: .ALPHA.-TOCOPHEROL
  17. VITAMIN B12 [Concomitant]
     Active Substance: CYANOCOBALAMIN

REACTIONS (2)
  - Nausea [Unknown]
  - Headache [Unknown]

NARRATIVE: CASE EVENT DATE: 20100629
